FAERS Safety Report 9180887 (Version 1)
Quarter: 2013Q1

REPORT INFORMATION
  Report Type: Report from Study
  Country: CA (occurrence: CA)
  Receive Date: 20130322
  Receipt Date: 20130322
  Transmission Date: 20140127
  Serious: Yes (Hospitalization)
  Sender: FDA-Public Use
  Company Number: CA-JNJFOC-20130307750

PATIENT
  Age: 64 Year
  Sex: Female
  Weight: 62 kg

DRUGS (4)
  1. REMICADE [Suspect]
     Indication: RHEUMATOID ARTHRITIS
     Route: 042
     Dates: start: 20031015
  2. APO HYDRO [Concomitant]
     Route: 065
  3. APO-DICLO SR [Concomitant]
     Route: 065
  4. LOSEC [Concomitant]
     Route: 065

REACTIONS (1)
  - Knee arthroplasty [Recovering/Resolving]
